FAERS Safety Report 13423881 (Version 1)
Quarter: 2017Q2

REPORT INFORMATION
  Report Type: Spontaneous
  Country: JP (occurrence: JP)
  Receive Date: 20170410
  Receipt Date: 20170410
  Transmission Date: 20170830
  Serious: Yes (Hospitalization, Other)
  Sender: FDA-Public Use
  Company Number: JP-PFIZER INC-2017154445

PATIENT
  Age: 65 Year
  Sex: Male

DRUGS (1)
  1. ALDACTONE A [Suspect]
     Active Substance: SPIRONOLACTONE

REACTIONS (7)
  - Groin pain [Unknown]
  - Hypoaesthesia [Unknown]
  - Urethral pain [Unknown]
  - Cardiac failure [Unknown]
  - Abdominal pain lower [Unknown]
  - Nephrostomy [Unknown]
  - Haematuria [Unknown]

NARRATIVE: CASE EVENT DATE: 20170221
